FAERS Safety Report 15458741 (Version 18)
Quarter: 2024Q2

REPORT INFORMATION
  Report Type: Spontaneous
  Country: FR (occurrence: FR)
  Receive Date: 20181003
  Receipt Date: 20240604
  Transmission Date: 20240716
  Serious: Yes (Life-Threatening, Other)
  Sender: FDA-Public Use
  Company Number: FR-BRISTOL-MYERS SQUIBB COMPANY-BMS-2018-089421

PATIENT
  Age: 69 Year
  Sex: Male
  Weight: 66 kg

DRUGS (44)
  1. ELIQUIS [Suspect]
     Active Substance: APIXABAN
     Indication: Product used for unknown indication
     Dosage: 1 DOSAGE FORM, BID
     Route: 048
  2. ELIQUIS [Suspect]
     Active Substance: APIXABAN
     Dosage: 1 DOSAGE FORM, QD 1 DF, 1X/DAY (QD)
     Route: 048
  3. ELIQUIS [Suspect]
     Active Substance: APIXABAN
     Dosage: 2 DOSAGE FORM, BID
     Route: 048
  4. ELIQUIS [Suspect]
     Active Substance: APIXABAN
     Dosage: 1 DOSAGE FORM, BID
     Route: 048
  5. ELIQUIS [Suspect]
     Active Substance: APIXABAN
     Dosage: 2 DOSAGE FORM, QD
     Route: 048
  6. ELIQUIS [Suspect]
     Active Substance: APIXABAN
     Dosage: NUMBER OF UNITS IN THE INTERVAL: 0.5 DEFINITION OF THE TIME INTERVAL UNIT: DAY
     Route: 048
  7. BACTRIM [Suspect]
     Active Substance: SULFAMETHOXAZOLE\TRIMETHOPRIM
     Indication: Pneumocystis jirovecii pneumonia
     Dosage: 1 DF, 1X/DAY (QD)
     Route: 048
     Dates: end: 201806
  8. BACTRIM [Suspect]
     Active Substance: SULFAMETHOXAZOLE\TRIMETHOPRIM
     Dosage: UNK, TID
     Route: 048
  9. BACTRIM [Suspect]
     Active Substance: SULFAMETHOXAZOLE\TRIMETHOPRIM
     Dosage: UNK UNK, TID
  10. BACTRIM [Suspect]
     Active Substance: SULFAMETHOXAZOLE\TRIMETHOPRIM
     Dosage: 1 DF, 1X/DAY (QD)
  11. ZOPICLONE [Suspect]
     Active Substance: ZOPICLONE
     Indication: Product used for unknown indication
     Dosage: 1 DOSAGE FORM, QD
  12. ZOPICLONE [Suspect]
     Active Substance: ZOPICLONE
     Dosage: 1 DF, 1X1 DAY
  13. DEXAMETHASONE ACETATE [Suspect]
     Active Substance: DEXAMETHASONE ACETATE
     Indication: Product used for unknown indication
     Dosage: 1 DF, WEEKLY
  14. LANSOPRAZOLE [Suspect]
     Active Substance: LANSOPRAZOLE
     Indication: Product used for unknown indication
     Dosage: 1 DF, DAILY, 1 DOSAGE FORM, QD
  15. LANSOPRAZOLE [Suspect]
     Active Substance: LANSOPRAZOLE
     Dosage: UNK, QD
  16. LACTULOSE [Suspect]
     Active Substance: LACTULOSE
     Indication: Product used for unknown indication
     Dosage: 2 DF, 1X/DAY
  17. LACTULOSE [Suspect]
     Active Substance: LACTULOSE
     Dosage: 2 DF, 1X/DAY
  18. LACTULOSE [Suspect]
     Active Substance: LACTULOSE
     Dosage: 2 DOSAGE FORM, TID
  19. LACTULOSE [Suspect]
     Active Substance: LACTULOSE
     Dosage: UNK, QD
  20. VESICARE [Suspect]
     Active Substance: SOLIFENACIN SUCCINATE
     Indication: Urinary incontinence
     Dosage: 10 MILLIGRAM, QD
     Route: 048
  21. TRAMADOL HYDROCHLORIDE [Suspect]
     Active Substance: TRAMADOL HYDROCHLORIDE
     Indication: Pain
     Dosage: 400 MG, 1X/DAY
     Route: 048
     Dates: start: 201604, end: 201806
  22. TRAMADOL HYDROCHLORIDE [Suspect]
     Active Substance: TRAMADOL HYDROCHLORIDE
     Dosage: 200 MG, 1X/DAY
     Route: 048
     Dates: end: 201806
  23. TRAMADOL HYDROCHLORIDE [Suspect]
     Active Substance: TRAMADOL HYDROCHLORIDE
     Dosage: UNK, TID
     Route: 048
  24. TRAMADOL HYDROCHLORIDE [Suspect]
     Active Substance: TRAMADOL HYDROCHLORIDE
     Dosage: UNK, UNK, QD
  25. TRAMADOL HYDROCHLORIDE [Suspect]
     Active Substance: TRAMADOL HYDROCHLORIDE
     Dosage: 0.33 TIMES A DAY
  26. BACLOFEN [Suspect]
     Active Substance: BACLOFEN
     Indication: Product used for unknown indication
     Dosage: 2 DF, TID
  27. BACLOFEN [Suspect]
     Active Substance: BACLOFEN
     Dosage: 1 DOSAGE FORM, QD
  28. BACLOFEN [Suspect]
     Active Substance: BACLOFEN
     Dosage: 6 DOSAGE FORM, QD
  29. BACLOFEN [Suspect]
     Active Substance: BACLOFEN
     Dosage: UNK, BID
  30. BACLOFEN [Suspect]
     Active Substance: BACLOFEN
     Dosage: UNK, QD
  31. BACLOFEN [Suspect]
     Active Substance: BACLOFEN
     Dosage: UNK, TID
  32. PREGABALIN [Suspect]
     Active Substance: PREGABALIN
     Indication: Product used for unknown indication
     Dosage: 1 DF, 2X/DAY (BID)
  33. PREGABALIN [Suspect]
     Active Substance: PREGABALIN
     Dosage: 1 DOSAGE FORM, QD
  34. PREGABALIN [Suspect]
     Active Substance: PREGABALIN
     Dosage: 2 DOSAGE FORM, QD
  35. PREGABALIN [Suspect]
     Active Substance: PREGABALIN
     Dosage: 1 DOSAGE FORM, QD
  36. VALACYCLOVIR HYDROCHLORIDE [Suspect]
     Active Substance: VALACYCLOVIR HYDROCHLORIDE
     Indication: Infection prophylaxis
     Dosage: 500 MG, 1X/DAY, 500 MG, QD
     Route: 048
     Dates: end: 201806
  37. DEXAMETHASONE ACETATE [Suspect]
     Active Substance: DEXAMETHASONE ACETATE
     Indication: Product used for unknown indication
     Dosage: 1 DOSAGE FORM, 1/WEEK
  38. ACETAMINOPHEN [Suspect]
     Active Substance: ACETAMINOPHEN
     Indication: Product used for unknown indication
     Dosage: 1 DF, 3X/DAY (TID)
  39. ACETAMINOPHEN [Suspect]
     Active Substance: ACETAMINOPHEN
     Dosage: 1 DF, 1X/DAY (QD)
  40. ACETAMINOPHEN [Suspect]
     Active Substance: ACETAMINOPHEN
     Dosage: 3 DOSAGE FORM, QD
  41. ACETAMINOPHEN [Suspect]
     Active Substance: ACETAMINOPHEN
     Dosage: 1 DOSAGE FORM, TID
  42. AMOXICILLIN TRIHYDRATE [Suspect]
     Active Substance: AMOXICILLIN
     Indication: Infection
     Dosage: 1000 MILLIGRAM, QD
     Route: 048
     Dates: end: 201806
  43. LEUCOVORIN CALCIUM [Suspect]
     Active Substance: LEUCOVORIN CALCIUM
     Indication: Product used for unknown indication
     Dosage: UNK
  44. FOLIC ACID [Suspect]
     Active Substance: FOLIC ACID
     Indication: Product used for unknown indication

REACTIONS (8)
  - Drug intolerance [Unknown]
  - Blood pressure decreased [Unknown]
  - Confusional state [Recovered/Resolved]
  - Off label use [Unknown]
  - Coma [Recovered/Resolved]
  - Overdose [Recovered/Resolved]
  - Somnolence [Recovered/Resolved]
  - Epilepsy [Recovered/Resolved]

NARRATIVE: CASE EVENT DATE: 20180607
